FAERS Safety Report 9050619 (Version 2)
Quarter: 2013Q1

REPORT INFORMATION
  Report Type: Spontaneous
  Country: US (occurrence: US)
  Receive Date: 20130205
  Receipt Date: 20130226
  Transmission Date: 20140127
  Serious: Yes (Other)
  Sender: FDA-Public Use
  Company Number: US-PFIZER INC-2013042439

PATIENT
  Age: 51 Year
  Sex: Male
  Weight: 81.63 kg

DRUGS (7)
  1. PRISTIQ [Suspect]
     Indication: PAIN
     Dosage: 50 MG, DAILY
  2. PRISTIQ [Suspect]
     Indication: DEPRESSION
  3. PRISTIQ [Suspect]
     Indication: FIBROMYALGIA
  4. VENLAFAXINE HYDROCHLORIDE [Suspect]
     Indication: DEPRESSION
     Dosage: 37.5 MG, DAILY
  5. MELOXICAM [Suspect]
     Indication: DEPRESSION
     Dosage: 15 MG (1 TABLET), DAILY
  6. GABAPENTIN [Suspect]
     Indication: HEADACHE
     Dosage: 800 MG, 3X/DAY
  7. BACLOFEN [Concomitant]
     Indication: MUSCLE SPASMS
     Dosage: 20 MG, 3X/DAY

REACTIONS (4)
  - Hearing impaired [Not Recovered/Not Resolved]
  - Visual impairment [Unknown]
  - Euphoric mood [Unknown]
  - Off label use [Not Recovered/Not Resolved]
